FAERS Safety Report 5319544-3 (Version None)
Quarter: 2007Q2

REPORT INFORMATION
  Report Type: 
  Country: None (occurrence: None)
  Receive Date: 20070508
  Receipt Date: 20070430
  Transmission Date: 20071010
  Serious: Yes (Other)
  Sender: FDA-Public Use
  Company Number: US-ELI_LILLY_AND_COMPANY-US200703002862

PATIENT
  Age: 74 Year
  Sex: Female
  Weight: 63.492 kg

DRUGS (2)
  1. FORTEO [Suspect]
     Indication: OSTEOPOROSIS
     Dosage: UNK, UNK
     Dates: start: 20050601
  2. FORTEO [Suspect]

REACTIONS (8)
  - BACK PAIN [None]
  - FALL [None]
  - INSOMNIA [None]
  - PELVIC FRACTURE [None]
  - PELVIC PAIN [None]
  - SPINAL FRACTURE [None]
  - VISUAL ACUITY REDUCED [None]
  - WEIGHT INCREASED [None]
